FAERS Safety Report 8409838-7 (Version None)
Quarter: 2012Q2

REPORT INFORMATION
  Report Type: 
  Country: None (occurrence: None)
  Receive Date: 20120605
  Receipt Date: 20120531
  Transmission Date: 20120825
  Serious: No
  Sender: FDA-Public Use
  Company Number: US-PFIZER INC-2012132685

PATIENT
  Sex: Male

DRUGS (1)
  1. VIAGRA [Suspect]
     Dosage: UNK, SINGLE
     Dates: start: 20120531

REACTIONS (4)
  - IRRITABLE BOWEL SYNDROME [None]
  - CHROMATURIA [None]
  - ABDOMINAL PAIN UPPER [None]
  - URINE OUTPUT INCREASED [None]
